FAERS Safety Report 7236920-2 (Version None)
Quarter: 2011Q1

REPORT INFORMATION
  Report Type: 
  Country: None (occurrence: None)
  Receive Date: 20110121
  Receipt Date: 20110113
  Transmission Date: 20110831
  Serious: Yes (Hospitalization)
  Sender: FDA-Public Use
  Company Number: US-ASTRAZENECA-2008UW18326

PATIENT
  Age: 15762 Day
  Sex: Female
  Weight: 63.5 kg

DRUGS (21)
  1. REMERON [Concomitant]
     Dosage: 30 TO 45 MG AT NIGHT
     Dates: start: 20050701
  2. RANITIDINE [Concomitant]
     Indication: GASTROOESOPHAGEAL REFLUX DISEASE
     Route: 048
     Dates: start: 20020724
  3. VICODIN [Concomitant]
     Indication: PAIN
     Dosage: 1 OR 2 TABS Q 4 HRS
     Dates: start: 20050701
  4. TRICOR [Concomitant]
     Dates: start: 20050701
  5. ZANTAC [Concomitant]
     Dates: start: 20051101
  6. DEPAKOTE ER [Concomitant]
     Dates: start: 20020823
  7. LAMICTAL [Concomitant]
     Dates: start: 20050701
  8. KLONOPIN [Concomitant]
  9. TRAZODONE [Concomitant]
     Dosage: 2 OR 3 TABS HS
     Dates: start: 20050701
  10. RISPERDAL [Concomitant]
     Dosage: TK SS T HS
     Dates: start: 20020823
  11. OS-CAL [Concomitant]
     Dosage: WITH VITAMIN D, 1 TABLET BID
     Dates: start: 20051101
  12. CYMBALTA [Concomitant]
  13. SEROQUEL [Suspect]
     Indication: DEPRESSION
     Dosage: 25 MG, 200 MG, 300 MG
     Route: 048
     Dates: start: 20020901, end: 20051201
  14. SEROQUEL [Suspect]
     Dosage: 200 TO 300 MG AT NIGHT
     Route: 048
     Dates: start: 20020905
  15. DILAUDID [Concomitant]
     Indication: PAIN
     Dates: start: 20051101
  16. ATIVAN [Concomitant]
     Indication: ANXIETY
     Dates: start: 20051101
  17. TYLENOL GRAINS [Concomitant]
     Indication: DISCOMFORT
     Dosage: GRAINS 10, Q 4 HRS
     Dates: start: 20051101
  18. CYMBALTA [Concomitant]
     Dates: start: 20050701
  19. TRAZODONE [Concomitant]
  20. REMERON [Concomitant]
  21. TRICOR [Concomitant]
     Route: 048
     Dates: start: 20020114

REACTIONS (8)
  - TYPE 2 DIABETES MELLITUS [None]
  - HYPERGLYCAEMIA [None]
  - BIPOLAR DISORDER [None]
  - OBESITY [None]
  - HYPERLIPIDAEMIA [None]
  - CHOLELITHIASIS [None]
  - PANCREATITIS ACUTE [None]
  - CHOLECYSTITIS ACUTE [None]
